FAERS Safety Report 10519975 (Version 1)
Quarter: 2014Q4

REPORT INFORMATION
  Report Type: Spontaneous
  Country: SG (occurrence: SG)
  Receive Date: 20141015
  Receipt Date: 20141015
  Transmission Date: 20150528
  Serious: Yes (Death, Other)
  Sender: FDA-Public Use
  Company Number: SG-BAXTER-2014BAX060330

PATIENT

DRUGS (1)
  1. DIANEAL LOW CALCIUM (2.5 MEQ/L) PERITONEAL DIALYSIS SOLUTION WITH  2.5 [Suspect]
     Active Substance: CALCIUM CHLORIDE\DEXTROSE\MAGNESIUM CHLORIDE\SODIUM CHLORIDE\SODIUM LACTATE
     Indication: PERITONEAL DIALYSIS
     Route: 033
     Dates: end: 20141003

REACTIONS (2)
  - Dyspnoea [Fatal]
  - Cardiac disorder [Unknown]
